FAERS Safety Report 8195949-0 (Version None)
Quarter: 2012Q1

REPORT INFORMATION
  Report Type: 
  Country: None (occurrence: None)
  Receive Date: 20120309
  Receipt Date: 20120224
  Transmission Date: 20120608
  Serious: Yes (Hospitalization)
  Sender: FDA-Public Use
  Company Number: DE-AMGEN-DEUSP2012005125

PATIENT
  Age: 48 Year
  Sex: Male
  Weight: 73 kg

DRUGS (3)
  1. PREDNISOLONE [Concomitant]
     Indication: PSORIATIC ARTHROPATHY
     Dosage: 20 MG, UNK
     Route: 048
  2. METHOTREXATE [Concomitant]
     Indication: PSORIATIC ARTHROPATHY
     Dosage: 15 MG, UNK
  3. ENBREL [Suspect]
     Indication: PSORIATIC ARTHROPATHY
     Dosage: 25 MG, 2X/WEEK
     Dates: start: 20100914, end: 20111001

REACTIONS (3)
  - DRUG EFFECT DECREASED [None]
  - CORONARY ARTERY DISEASE [None]
  - MYOCARDIAL INFARCTION [None]
